FAERS Safety Report 6782823-7 (Version None)
Quarter: 2010Q2

REPORT INFORMATION
  Report Type: 
  Country: None (occurrence: None)
  Receive Date: 20100616
  Receipt Date: 20100608
  Transmission Date: 20101027
  Serious: Yes (Other)
  Sender: FDA-Public Use
  Company Number: 013402

PATIENT
  Age: 71 Year
  Sex: Female

DRUGS (8)
  1. NEUPRO [Suspect]
     Dosage: (TRANSDERMAL)
     Route: 062
  2. CO-CARELDOPA [Concomitant]
  3. ESOMEPRAZOLE [Concomitant]
  4. LEVOTHYROXINE SODIUM [Concomitant]
  5. LITHIUM CARBONATE [Concomitant]
  6. METOCLOPRAMIDE [Concomitant]
  7. MIRTAZAPINE [Concomitant]
  8. ZOLPIDEM TARTRATE [Concomitant]

REACTIONS (8)
  - CONVULSIVE THRESHOLD LOWERED [None]
  - DISORIENTATION [None]
  - EYE ROLLING [None]
  - FOAMING AT MOUTH [None]
  - LOSS OF CONSCIOUSNESS [None]
  - NAUSEA [None]
  - URINARY INCONTINENCE [None]
  - VOMITING [None]
